FAERS Safety Report 23134349 (Version 2)
Quarter: 2023Q4

REPORT INFORMATION
  Report Type: Spontaneous
  Country: US (occurrence: US)
  Receive Date: 20231101
  Receipt Date: 20231113
  Transmission Date: 20240109
  Serious: Yes (Death, Hospitalization)
  Sender: FDA-Public Use
  Company Number: US-TEVA-2023-US-2940268

PATIENT
  Age: 62 Year
  Sex: Female

DRUGS (6)
  1. CIPROFLOXACIN [Suspect]
     Active Substance: CIPROFLOXACIN
     Indication: Antibiotic therapy
     Route: 065
  2. CIPROFLOXACIN [Suspect]
     Active Substance: CIPROFLOXACIN
     Indication: Evidence based treatment
  3. METRONIDAZOLE [Suspect]
     Active Substance: METRONIDAZOLE
     Indication: Antibiotic therapy
     Route: 065
  4. METRONIDAZOLE [Suspect]
     Active Substance: METRONIDAZOLE
     Indication: Evidence based treatment
  5. VANCOMYCIN [Suspect]
     Active Substance: VANCOMYCIN
     Indication: Antibiotic therapy
     Route: 048
  6. VANCOMYCIN [Suspect]
     Active Substance: VANCOMYCIN
     Indication: Evidence based treatment

REACTIONS (8)
  - Gastroenteritis Escherichia coli [Fatal]
  - Haemolytic uraemic syndrome [Fatal]
  - Infection [Fatal]
  - Renal failure [Fatal]
  - Encephalopathy [Fatal]
  - Autonomic nervous system imbalance [Fatal]
  - Generalised tonic-clonic seizure [Fatal]
  - Multiple organ dysfunction syndrome [Fatal]
